FAERS Safety Report 4389143-9 (Version None)
Quarter: 2004Q3

REPORT INFORMATION
  Report Type: 
  Country: None (occurrence: None)
  Receive Date: 20040702
  Receipt Date: 20040107
  Transmission Date: 20050211
  Serious: No
  Sender: FDA-Public Use
  Company Number: US-GLAXOSMITHKLINE-A0491929A

PATIENT
  Age: 56 Year
  Sex: Female
  Weight: 70.5 kg

DRUGS (5)
  1. PARNATE [Suspect]
     Indication: DEPRESSION
     Dosage: 30MG PER DAY
     Route: 048
     Dates: start: 20031213
  2. KLONOPIN [Concomitant]
     Dosage: 4.6MG PER DAY
  3. SEROQUEL [Concomitant]
     Dosage: 100MG PER DAY
  4. FLAX OIL [Concomitant]
  5. CHROMIUM [Concomitant]
     Dosage: 200MG PER DAY

REACTIONS (1)
  - EYE REDNESS [None]
